FAERS Safety Report 15600874 (Version 2)
Quarter: 2018Q4

REPORT INFORMATION
  Report Type: Report from Study
  Country: JP (occurrence: JP)
  Receive Date: 20181109
  Receipt Date: 20181122
  Transmission Date: 20190205
  Serious: Yes (Death, Hospitalization, Other)
  Sender: FDA-Public Use
  Company Number: JP-AMGEN-JPNNI2018156775

PATIENT
  Age: 72 Year
  Sex: Female
  Weight: 34 kg

DRUGS (3)
  1. FOSRENOL [Concomitant]
     Active Substance: LANTHANUM CARBONATE
     Indication: HYPERPHOSPHATAEMIA
     Dosage: 1500 MG, QD (EVERYDAY)
     Route: 048
     Dates: start: 20180108
  2. OXAROL [Concomitant]
     Active Substance: MAXACALCITOL
     Dosage: 5 MCG, QD (EVERYDAY)
     Route: 042
  3. ETELCALCETIDE [Suspect]
     Active Substance: ETELCALCETIDE
     Indication: HYPERPARATHYROIDISM SECONDARY
     Dosage: 2.5 MG, 3 TIMES/WK
     Route: 042
     Dates: start: 20171205, end: 20180604

REACTIONS (2)
  - Embolic stroke [Fatal]
  - Stress cardiomyopathy [Unknown]

NARRATIVE: CASE EVENT DATE: 20180605
